FAERS Safety Report 15551881 (Version 1)
Quarter: 2018Q4

REPORT INFORMATION
  Report Type: Spontaneous
  Country: DO (occurrence: DO)
  Receive Date: 20181025
  Receipt Date: 20181025
  Transmission Date: 20190205
  Serious: Yes (Other)
  Sender: FDA-Public Use
  Company Number: DO-BAYER-2018-196660

PATIENT
  Age: 84 Year
  Sex: Female

DRUGS (1)
  1. ADEMPAS [Suspect]
     Active Substance: RIOCIGUAT
     Dosage: 1 MG, UNK

REACTIONS (2)
  - Syncope [Not Recovered/Not Resolved]
  - Dizziness [Not Recovered/Not Resolved]
